FAERS Safety Report 5816497-6 (Version None)
Quarter: 2008Q3

REPORT INFORMATION
  Report Type: 
  Country: None (occurrence: None)
  Receive Date: 20080721
  Receipt Date: 20080707
  Transmission Date: 20090109
  Serious: Yes (Other)
  Sender: FDA-Public Use
  Company Number: US-WYE-H04937008

PATIENT
  Sex: Female

DRUGS (5)
  1. EFFEXOR XR [Suspect]
     Indication: DEPRESSION
     Dosage: TITRATED UP TO 75 MG DAILY
     Route: 048
     Dates: start: 20060101, end: 20080629
  2. EFFEXOR XR [Interacting]
     Route: 048
     Dates: start: 20080630
  3. CLARITIN [Concomitant]
     Dosage: UNKNOWN
  4. CIMICIFUGA [Interacting]
     Indication: MENOPAUSAL SYMPTOMS
     Dosage: UNKNOWN
     Dates: start: 20080601
  5. CIMETIDINE [Concomitant]
     Dosage: UNKNOWN

REACTIONS (6)
  - DISORIENTATION [None]
  - DIZZINESS [None]
  - DRUG INTERACTION [None]
  - DRUG WITHDRAWAL SYNDROME [None]
  - NAUSEA [None]
  - SUICIDAL IDEATION [None]
